FAERS Safety Report 23123030 (Version 3)
Quarter: 2023Q4

REPORT INFORMATION
  Report Type: Report from Study
  Country: CN (occurrence: None)
  Receive Date: 20231030
  Receipt Date: 20231116
  Transmission Date: 20240110
  Serious: Yes (Hospitalization)
  Sender: FDA-Public Use
  Company Number: CN-ROCHE-3447679

PATIENT
  Age: 68 Year
  Sex: Female
  Weight: 71 kg

DRUGS (31)
  1. EPCORITAMAB [Suspect]
     Active Substance: EPCORITAMAB
     Indication: B-cell lymphoma
     Dosage: PRIMING DOSE C1, D1, TOTAL
     Route: 058
     Dates: start: 20230828, end: 20230828
  2. EPCORITAMAB [Suspect]
     Active Substance: EPCORITAMAB
     Dosage: INTERMEDIATE DOSE C1, D8
     Route: 058
     Dates: start: 20230904, end: 20230904
  3. EPCORITAMAB [Suspect]
     Active Substance: EPCORITAMAB
     Dosage: 0.16 MG RE-PRIMING DOSE
     Route: 058
     Dates: start: 20230922, end: 20230922
  4. EPCORITAMAB [Suspect]
     Active Substance: EPCORITAMAB
     Dosage: 0.8 MG RE-INTERMEDIATE DOSE
     Route: 058
     Dates: start: 20230929, end: 20230929
  5. EPCORITAMAB [Suspect]
     Active Substance: EPCORITAMAB
     Route: 058
     Dates: start: 20231008, end: 20231008
  6. RITUXIMAB [Suspect]
     Active Substance: RITUXIMAB
     Indication: B-cell lymphoma
     Route: 042
     Dates: start: 20230828, end: 20231008
  7. RITUXIMAB [Suspect]
     Active Substance: RITUXIMAB
     Route: 042
     Dates: start: 20231025
  8. LENALIDOMIDE [Suspect]
     Active Substance: LENALIDOMIDE
     Indication: B-cell lymphoma
     Dosage: DAY 1 - 21 OF EACH CYCLE
     Route: 048
     Dates: start: 20230828, end: 20230908
  9. LENALIDOMIDE [Suspect]
     Active Substance: LENALIDOMIDE
     Dosage: DAY 1 - 21 OF EACH CYCLE
     Route: 048
     Dates: start: 20230929, end: 20231009
  10. ACYCLOVIR [Concomitant]
     Active Substance: ACYCLOVIR
     Dates: start: 20230829
  11. SULFAMETHOXAZOLE [Concomitant]
     Active Substance: SULFAMETHOXAZOLE
  12. ESTAZOLAM [Concomitant]
     Active Substance: ESTAZOLAM
     Indication: Insomnia
     Dosage: 2 TABLETS
     Route: 048
     Dates: start: 2020
  13. AONENG [Concomitant]
     Indication: Eczema
     Dates: start: 20230618
  14. FLUMETHASONE [Concomitant]
     Active Substance: FLUMETHASONE
     Indication: Eczema
     Dates: start: 20230618
  15. SALICYLIC ACID [Concomitant]
     Active Substance: BENZETHONIUM CHLORIDE\DEXTROMETHORPHAN HYDROBROMIDE\DYCLONINE HYDROCHLORIDE\GUAIFENESIN\SALICYLIC AC
     Indication: Eczema
     Dates: start: 20230323
  16. CALCIUM\VITAMIN D [Concomitant]
     Active Substance: CALCIUM\VITAMIN D
     Indication: Mineral supplementation
     Dosage: 1 TABLET
     Dates: start: 202110
  17. DESLORATADINE [Concomitant]
     Active Substance: DESLORATADINE
     Indication: Eczema
     Dates: start: 20230618
  18. ENTECAVIR [Concomitant]
     Active Substance: ENTECAVIR
     Indication: Hepatitis B
     Dates: start: 202008
  19. ACETAMINOPHEN [Concomitant]
     Active Substance: ACETAMINOPHEN
     Dates: start: 20230828, end: 20230908
  20. ACETAMINOPHEN [Concomitant]
     Active Substance: ACETAMINOPHEN
     Dates: start: 20230904, end: 20230904
  21. ACETAMINOPHEN [Concomitant]
     Active Substance: ACETAMINOPHEN
     Dates: start: 20230922, end: 20230922
  22. ACETAMINOPHEN [Concomitant]
     Active Substance: ACETAMINOPHEN
     Dates: start: 20230928, end: 20230928
  23. ACETAMINOPHEN [Concomitant]
     Active Substance: ACETAMINOPHEN
     Dates: start: 20231008, end: 20231008
  24. DEXAMETHASONE SODIUM PHOSPHATE [Concomitant]
     Active Substance: DEXAMETHASONE SODIUM PHOSPHATE
     Dates: start: 20230828, end: 20230828
  25. DEXAMETHASONE SODIUM PHOSPHATE [Concomitant]
     Active Substance: DEXAMETHASONE SODIUM PHOSPHATE
     Dates: start: 20230922, end: 20230922
  26. DEXAMETHASONE SODIUM PHOSPHATE [Concomitant]
     Active Substance: DEXAMETHASONE SODIUM PHOSPHATE
     Dates: start: 20230929, end: 20230929
  27. EUCRISA [Concomitant]
     Active Substance: CRISABOROLE
     Indication: Eczema
     Dates: start: 20230323
  28. POLYVINYL ALCOHOL [Concomitant]
     Active Substance: POLYVINYL ALCOHOL
     Indication: Hepatic steatosis
  29. BICYCLOL [Concomitant]
     Active Substance: BICYCLOL
     Indication: Hepatic steatosis
  30. HEROMBOPAG OLAMINE [Concomitant]
     Indication: Thrombocytopenia
     Dates: start: 20231005
  31. PIRFENIDONE [Concomitant]
     Active Substance: PIRFENIDONE
     Dates: start: 20230512

REACTIONS (1)
  - Leukopenia [Recovered/Resolved]

NARRATIVE: CASE EVENT DATE: 20231009
